FAERS Safety Report 8588334-0 (Version None)
Quarter: 2012Q3

REPORT INFORMATION
  Report Type: 
  Country: None (occurrence: None)
  Receive Date: 20120813
  Receipt Date: 20120731
  Transmission Date: 20120928
  Serious: Yes (Hospitalization, Other)
  Sender: FDA-Public Use
  Company Number: RO-ELI_LILLY_AND_COMPANY-RO201207000898

PATIENT
  Age: 28 Year
  Sex: Female
  Weight: 55 kg

DRUGS (1)
  1. OLANZAPINE [Suspect]
     Indication: SCHIZOPHRENIA, PARANOID TYPE
     Dosage: 300 MG, 2/M
     Dates: start: 20110601

REACTIONS (11)
  - SEDATION [None]
  - AGGRESSION [None]
  - CONFUSIONAL STATE [None]
  - HYPOTENSION [None]
  - DYSKINESIA [None]
  - PSYCHOMOTOR HYPERACTIVITY [None]
  - INTENTIONAL SELF-INJURY [None]
  - AGITATION [None]
  - MIOSIS [None]
  - COMA [None]
  - HALLUCINATION, VISUAL [None]
